FAERS Safety Report 11889358 (Version 1)
Quarter: 2016Q1

REPORT INFORMATION
  Report Type: Spontaneous
  Country: US (occurrence: US)
  Receive Date: 20160105
  Receipt Date: 20160105
  Transmission Date: 20160526
  Serious: Yes (Other)
  Sender: FDA-Public Use
  Company Number: US-APOTEX-2015AP015623

PATIENT
  Age: 89 Year
  Sex: Female

DRUGS (3)
  1. SOTALOL HYDROCHLORIDE. [Suspect]
     Active Substance: SOTALOL HYDROCHLORIDE
     Indication: PRODUCT USED FOR UNKNOWN INDICATION
     Dosage: UNK
     Route: 065
  2. LORAZEPAM. [Concomitant]
     Active Substance: LORAZEPAM
     Indication: ANXIETY
     Dosage: UNK
     Route: 065
  3. LORAZEPAM. [Concomitant]
     Active Substance: LORAZEPAM
     Indication: INSOMNIA

REACTIONS (4)
  - Metabolic encephalopathy [Unknown]
  - Myocardial ischaemia [Unknown]
  - Toxicity to various agents [Unknown]
  - Confusional state [Unknown]
